FAERS Safety Report 14147484 (Version 2)
Quarter: 2017Q4

REPORT INFORMATION
  Report Type: Spontaneous
  Country: BR (occurrence: BR)
  Receive Date: 20171031
  Receipt Date: 20171106
  Transmission Date: 20180321
  Serious: Yes (Other)
  Sender: FDA-Public Use
  Company Number: BR-PFIZER INC-2017416990

PATIENT
  Age: 61 Year
  Sex: Female

DRUGS (3)
  1. SUTENT [Suspect]
     Active Substance: SUNITINIB MALATE
     Indication: RENAL CANCER METASTATIC
     Dosage: 50MG, CYCLIC (TAKE DURING 14 DAYS AND STAY 7 DAYS WITHOUT TAKING IT/14 DAYS AND PAUSE DURING 7 DAYS)
     Dates: start: 20170911
  2. SYNTHROID [Concomitant]
     Active Substance: LEVOTHYROXINE SODIUM
     Dosage: UNK
     Dates: start: 2016
  3. PANTOPRAZOLE [Concomitant]
     Active Substance: PANTOPRAZOLE
     Dosage: UNK
     Dates: start: 1987

REACTIONS (23)
  - Pain [Not Recovered/Not Resolved]
  - Dysgeusia [Not Recovered/Not Resolved]
  - Dry mouth [Not Recovered/Not Resolved]
  - Fatigue [Recovered/Resolved]
  - Blister [Recovered/Resolved]
  - Gait inability [Recovered/Resolved]
  - Gait disturbance [Recovered/Resolved]
  - Eating disorder [Not Recovered/Not Resolved]
  - Mouth injury [Not Recovered/Not Resolved]
  - Gastritis [Not Recovered/Not Resolved]
  - Skin sensitisation [Recovered/Resolved]
  - Oral pain [Not Recovered/Not Resolved]
  - Paraesthesia [Recovered/Resolved]
  - Dyspepsia [Not Recovered/Not Resolved]
  - Stomatitis [Unknown]
  - Dry skin [Not Recovered/Not Resolved]
  - Diarrhoea [Not Recovered/Not Resolved]
  - Dysgeusia [Unknown]
  - Oral discomfort [Not Recovered/Not Resolved]
  - Hypertension [Recovered/Resolved]
  - Condition aggravated [Not Recovered/Not Resolved]
  - Tongue discomfort [Not Recovered/Not Resolved]
  - Hyperchlorhydria [Not Recovered/Not Resolved]

NARRATIVE: CASE EVENT DATE: 2017
